FAERS Safety Report 11263731 (Version 4)
Quarter: 2016Q2

REPORT INFORMATION
  Report Type: Spontaneous
  Country: US (occurrence: US)
  Receive Date: 20150713
  Receipt Date: 20160608
  Transmission Date: 20160815
  Serious: Yes (Other)
  Sender: FDA-Public Use
  Company Number: US-ASTRAZENECA-2015SE66419

PATIENT
  Age: 26120 Day
  Sex: Male
  Weight: 61.2 kg

DRUGS (43)
  1. TUDORZA PRESSAIR [Suspect]
     Active Substance: ACLIDINIUM BROMIDE
     Indication: CHRONIC OBSTRUCTIVE PULMONARY DISEASE
     Dosage: 400 MICROGRAMS, ONE PUFF TWO TIMES A DAY
     Route: 055
     Dates: start: 201509
  2. TUDORZA PRESSAIR [Suspect]
     Active Substance: ACLIDINIUM BROMIDE
     Indication: ASTHMA
     Dosage: 400 MICROGRAMS, ONE PUFF TWO TIMES A DAY
     Route: 055
     Dates: start: 201509
  3. CLONAZEPAM. [Concomitant]
     Active Substance: CLONAZEPAM
     Indication: NERVOUS SYSTEM DISORDER
     Dosage: HALF PILL A DAY
     Route: 048
  4. ANTIBIOTICS [Concomitant]
     Active Substance: UNSPECIFIED INGREDIENT
     Indication: MUCOUS MEMBRANE DISORDER
     Route: 048
     Dates: start: 20150701
  5. VITAMINS [Concomitant]
     Active Substance: VITAMINS
  6. VITAMIN C [Concomitant]
     Active Substance: ASCORBIC ACID
  7. VITAMIN D3 [Concomitant]
     Active Substance: CHOLECALCIFEROL
     Dosage: 2000.0IU UNKNOWN
  8. OMEPRAZOLE. [Suspect]
     Active Substance: OMEPRAZOLE
     Dosage: 20.0MG UNKNOWN
     Route: 048
  9. CLONAZEPAM. [Concomitant]
     Active Substance: CLONAZEPAM
     Indication: PANIC ATTACK
     Route: 048
     Dates: start: 2010
  10. ALBUTEROL. [Concomitant]
     Active Substance: ALBUTEROL
  11. SIMVASTATIN. [Concomitant]
     Active Substance: SIMVASTATIN
     Dosage: GENERIC TO ZOCOR, 40 MG UNKNOWN
  12. TUDORZA PRESSAIR [Suspect]
     Active Substance: ACLIDINIUM BROMIDE
     Indication: EMPHYSEMA
     Dosage: 400 MICROGRAMS, ONE PUFF TWO TIMES A DAY
     Route: 055
     Dates: start: 201507
  13. CLONAZEPAM. [Concomitant]
     Active Substance: CLONAZEPAM
     Indication: NERVOUS SYSTEM DISORDER
     Route: 048
     Dates: start: 2010
  14. ANTIBIOTICS [Concomitant]
     Active Substance: UNSPECIFIED INGREDIENT
     Indication: DYSPNOEA
     Route: 048
     Dates: start: 20150701
  15. TUDORZA PRESSAIR [Suspect]
     Active Substance: ACLIDINIUM BROMIDE
     Indication: EMPHYSEMA
     Dosage: 400 MICROGRAMS, ONE PUFF TWO TIMES A DAY
     Route: 055
     Dates: start: 201509
  16. THEOPHYLLINE [Concomitant]
     Active Substance: THEOPHYLLINE ANHYDROUS
     Indication: ILL-DEFINED DISORDER
     Route: 048
     Dates: start: 2005
  17. THEOPHYLLINE [Concomitant]
     Active Substance: THEOPHYLLINE ANHYDROUS
     Indication: EMPHYSEMA
     Route: 048
  18. CLONAZEPAM. [Concomitant]
     Active Substance: CLONAZEPAM
     Indication: ANXIETY
     Dosage: HALF PILL A DAY
     Route: 048
  19. VENTOLIN [Concomitant]
     Active Substance: ALBUTEROL SULFATE
     Indication: EMPHYSEMA
     Dosage: AS REQUIRED
     Dates: start: 201506
  20. FAST FORMULA COMPLETE [Concomitant]
     Dosage: DAILY
  21. TUDORZA PRESSAIR [Suspect]
     Active Substance: ACLIDINIUM BROMIDE
     Indication: CHRONIC OBSTRUCTIVE PULMONARY DISEASE
     Dosage: 400 MICROGRAMS, ONE PUFF TWO TIMES A DAY
     Route: 055
     Dates: start: 2015
  22. TUDORZA PRESSAIR [Suspect]
     Active Substance: ACLIDINIUM BROMIDE
     Indication: ASTHMA
     Dosage: 400 MICROGRAMS, ONE PUFF TWO TIMES A DAY
     Route: 055
     Dates: start: 2015
  23. CLONAZEPAM. [Concomitant]
     Active Substance: CLONAZEPAM
     Indication: PANIC ATTACK
     Dosage: HALF PILL A DAY
     Route: 048
  24. PREDNISONE. [Concomitant]
     Active Substance: PREDNISONE
     Indication: SECRETION DISCHARGE
     Route: 048
     Dates: start: 20150701
  25. DULERA [Concomitant]
     Active Substance: FORMOTEROL FUMARATE DIHYDRATE\MOMETASONE FUROATE
     Indication: ASTHMA
     Dates: start: 201507
  26. CALCIUM [Concomitant]
     Active Substance: CALCIUM
     Dosage: 600.0MG UNKNOWN
  27. OMEGA 3 6 9 FISH OIL [Concomitant]
  28. COENZYME Q10 [Concomitant]
     Active Substance: UBIDECARENONE
     Dosage: 100.0MG UNKNOWN
  29. TUDORZA PRESSAIR [Suspect]
     Active Substance: ACLIDINIUM BROMIDE
     Indication: CHRONIC OBSTRUCTIVE PULMONARY DISEASE
     Dosage: 400 MICROGRAMS, ONE PUFF TWO TIMES A DAY
     Route: 055
     Dates: start: 201507
  30. THEOPHYLLINE [Concomitant]
     Active Substance: THEOPHYLLINE ANHYDROUS
     Indication: CHRONIC OBSTRUCTIVE PULMONARY DISEASE
     Route: 048
     Dates: start: 2005
  31. PREDNISONE. [Concomitant]
     Active Substance: PREDNISONE
     Indication: DYSPNOEA
     Route: 048
     Dates: start: 20150701
  32. DULERA [Concomitant]
     Active Substance: FORMOTEROL FUMARATE DIHYDRATE\MOMETASONE FUROATE
     Indication: CHRONIC OBSTRUCTIVE PULMONARY DISEASE
     Dates: start: 201507
  33. ZINC [Concomitant]
     Active Substance: ZINC\ZINC CHLORIDE
     Dosage: 50.0MG UNKNOWN
  34. TUDORZA PRESSAIR [Suspect]
     Active Substance: ACLIDINIUM BROMIDE
     Indication: ASTHMA
     Dosage: 400 MICROGRAMS, ONE PUFF TWO TIMES A DAY
     Route: 055
     Dates: start: 201507
  35. TUDORZA PRESSAIR [Suspect]
     Active Substance: ACLIDINIUM BROMIDE
     Indication: EMPHYSEMA
     Dosage: 400 MICROGRAMS, ONE PUFF TWO TIMES A DAY
     Route: 055
     Dates: start: 2015
  36. CLONAZEPAM. [Concomitant]
     Active Substance: CLONAZEPAM
     Indication: ANXIETY
     Route: 048
     Dates: start: 2010
  37. VENTOLIN [Concomitant]
     Active Substance: ALBUTEROL SULFATE
     Indication: CHRONIC OBSTRUCTIVE PULMONARY DISEASE
     Dosage: AS REQUIRED
     Dates: start: 201506
  38. ASPIRIN. [Concomitant]
     Active Substance: ASPIRIN
     Dosage: 81.0MG UNKNOWN
  39. THEOPHYLLINE [Concomitant]
     Active Substance: THEOPHYLLINE ANHYDROUS
     Indication: EMPHYSEMA
     Route: 048
     Dates: start: 2005
  40. THEOPHYLLINE [Concomitant]
     Active Substance: THEOPHYLLINE ANHYDROUS
     Indication: ILL-DEFINED DISORDER
     Route: 048
  41. THEOPHYLLINE [Concomitant]
     Active Substance: THEOPHYLLINE ANHYDROUS
     Indication: CHRONIC OBSTRUCTIVE PULMONARY DISEASE
     Route: 048
  42. RESCUE INHALER [Concomitant]
     Indication: DYSPNOEA
     Dosage: AS REQUIRED
     Route: 055
  43. DULERA [Concomitant]
     Active Substance: FORMOTEROL FUMARATE DIHYDRATE\MOMETASONE FUROATE
     Indication: EMPHYSEMA
     Dates: start: 201507

REACTIONS (7)
  - Secretion discharge [Unknown]
  - Dysphagia [Unknown]
  - Cough [Not Recovered/Not Resolved]
  - Dyspnoea [Not Recovered/Not Resolved]
  - Drug dose omission [Unknown]
  - Drug ineffective [Unknown]
  - Device malfunction [Unknown]

NARRATIVE: CASE EVENT DATE: 20150701
